FAERS Safety Report 6525676-4 (Version None)
Quarter: 2009Q4

REPORT INFORMATION
  Report Type: 
  Country: None (occurrence: None)
  Receive Date: 20091214
  Receipt Date: 20090202
  Transmission Date: 20100525
  Serious: Yes (Other)
  Sender: FDA-Public Use
  Company Number: 612348

PATIENT
  Age: 56 Year
  Sex: Female

DRUGS (3)
  1. PEGASYS [Suspect]
     Indication: HEPATITIS C
     Dosage: 180 UG
  2. RIBAVIRIN [Suspect]
     Indication: HEPATITIS C
  3. NEUPOGEN [Concomitant]

REACTIONS (1)
  - ANGIOEDEMA [None]
